FAERS Safety Report 24580321 (Version 2)
Quarter: 2024Q4

REPORT INFORMATION
  Report Type: Spontaneous
  Country: GB (occurrence: GB)
  Receive Date: 20241105
  Receipt Date: 20241111
  Transmission Date: 20250115
  Serious: Yes (Death, Other)
  Sender: AMGEN
  Company Number: GB-AMGEN-GBRSP2024213867

PATIENT

DRUGS (8)
  1. CARFILZOMIB [Suspect]
     Active Substance: CARFILZOMIB
     Indication: Plasma cell myeloma
     Dosage: UNK
     Route: 065
  2. BORTEZOMIB [Suspect]
     Active Substance: BORTEZOMIB
     Indication: Plasma cell myeloma
     Dosage: UNK
     Route: 065
  3. IXAZOMIB [Suspect]
     Active Substance: IXAZOMIB
     Indication: Plasma cell myeloma
     Dosage: UNK
     Route: 065
  4. SELINEXOR [Suspect]
     Active Substance: SELINEXOR
     Indication: Plasma cell myeloma
     Dosage: 80 MILLIGRAM, Q2WK (TWICE WEEKLY)
     Route: 065
  5. SELINEXOR [Suspect]
     Active Substance: SELINEXOR
     Dosage: 100 MILLIGRAM, QWK (WEEKLY)
     Route: 065
  6. SELINEXOR [Suspect]
     Active Substance: SELINEXOR
     Dosage: 60 MILLIGRAM, Q2WK
     Route: 065
  7. SELINEXOR [Suspect]
     Active Substance: SELINEXOR
     Dosage: UNK UNK, QWK (REDUCED TO 80 OR 60 MG QW)
     Route: 065
  8. DEXAMETHASONE [Suspect]
     Active Substance: DEXAMETHASONE
     Indication: Plasma cell myeloma
     Dosage: UNK
     Route: 065

REACTIONS (28)
  - Plasma cell myeloma [Unknown]
  - Pneumonia [Fatal]
  - Thrombocytopenia [Unknown]
  - Neutropenia [Unknown]
  - Cytopenia [Unknown]
  - Sepsis [Unknown]
  - Seizure [Unknown]
  - Enterocolitis haemorrhagic [Unknown]
  - Acute kidney injury [Unknown]
  - COVID-19 [Unknown]
  - Pancytopenia [Unknown]
  - Therapy partial responder [Unknown]
  - Personality change [Unknown]
  - Decreased appetite [Unknown]
  - Fatigue [Unknown]
  - Nausea [Unknown]
  - Weight decreased [Unknown]
  - Hyponatraemia [Unknown]
  - Decreased appetite [Unknown]
  - Hepatic function abnormal [Unknown]
  - Diarrhoea [Unknown]
  - Vomiting [Unknown]
  - Somnolence [Unknown]
  - Dizziness [Unknown]
  - Malaise [Unknown]
  - Urinary tract infection [Unknown]
  - Therapy non-responder [Not Recovered/Not Resolved]
  - Drug intolerance [Unknown]
